FAERS Safety Report 7624004-0 (Version None)
Quarter: 2011Q3

REPORT INFORMATION
  Report Type: 
  Country: None (occurrence: None)
  Receive Date: 20110712
  Receipt Date: 20110627
  Transmission Date: 20111222
  Serious: Yes (Death)
  Sender: FDA-Public Use
  Company Number: OPER20110156

PATIENT
  Age: 24 Year
  Sex: Male
  Weight: 49.4421 kg

DRUGS (2)
  1. OPANA ER [Suspect]
     Indication: DRUG ABUSE
  2. COCAINE (COCAINE) [Suspect]
     Indication: DRUG ABUSE

REACTIONS (6)
  - FOREIGN BODY REACTION [None]
  - PULMONARY OEDEMA [None]
  - DRUG SCREEN POSITIVE [None]
  - UNRESPONSIVE TO STIMULI [None]
  - TOXICITY TO VARIOUS AGENTS [None]
  - LUNG DISORDER [None]
